FAERS Safety Report 4694954-6 (Version None)
Quarter: 2005Q2

REPORT INFORMATION
  Report Type: 
  Country: None (occurrence: None)
  Receive Date: 20050617
  Receipt Date: 20050607
  Transmission Date: 20051028
  Serious: Yes (Other)
  Sender: FDA-Public Use
  Company Number: 215093

PATIENT
  Age: 52 Year
  Sex: Male
  Weight: 45 kg

DRUGS (8)
  1. RITUXAN [Suspect]
     Indication: NON-HODGKIN'S LYMPHOMA
     Dosage: 600 MG, 1/WEEK, INTRAVENOUS
     Route: 042
     Dates: start: 20020206, end: 20020227
  2. CHLORPHENIRAMINE MALEATE [Concomitant]
  3. DICLOFENAC SODIUM [Concomitant]
  4. FAMOTIDINE [Concomitant]
  5. REBAMIPIDE [Concomitant]
  6. FLUCONAZOLE [Concomitant]
  7. ISONIAZID [Concomitant]
  8. VOGLIBOSE [Concomitant]

REACTIONS (2)
  - NEUTROPENIA [None]
  - WHITE BLOOD CELL COUNT DECREASED [None]
